FAERS Safety Report 5470854-9 (Version None)
Quarter: 2007Q3

REPORT INFORMATION
  Report Type: 
  Country: None (occurrence: None)
  Receive Date: 20070925
  Receipt Date: 20070911
  Transmission Date: 20080115
  Serious: Yes (Other)
  Sender: FDA-Public Use
  Company Number: 161424ISR

PATIENT
  Sex: Female

DRUGS (1)
  1. ISOSORBIDE DINITRATE [Suspect]
     Dosage: 40 MG (20 MG, 2IN 1 D)
     Route: 048

REACTIONS (3)
  - CEREBROVASCULAR ACCIDENT [None]
  - CONDITION AGGRAVATED [None]
  - DYSPHAGIA [None]
